FAERS Safety Report 23572290 (Version 2)
Quarter: 2024Q1

REPORT INFORMATION
  Report Type: Spontaneous
  Country: US (occurrence: US)
  Receive Date: 20240227
  Receipt Date: 20240306
  Transmission Date: 20240410
  Serious: No
  Sender: FDA-Public Use
  Company Number: US-SANOFI-01956073

PATIENT
  Age: 72 Year
  Sex: Female

DRUGS (1)
  1. LANTUS SOLOSTAR [Suspect]
     Active Substance: INSULIN GLARGINE
     Indication: Type 2 diabetes mellitus
     Dosage: 35 UNITS MORNING , 25 UNITS EVENING BID
     Route: 058

REACTIONS (2)
  - Inappropriate schedule of product administration [Unknown]
  - Intentional product misuse [Unknown]
